FAERS Safety Report 8248257-3 (Version None)
Quarter: 2012Q1

REPORT INFORMATION
  Report Type: 
  Country: None (occurrence: None)
  Receive Date: 20120330
  Receipt Date: 20120316
  Transmission Date: 20120608
  Serious: Yes (Hospitalization, Disabling)
  Sender: FDA-Public Use
  Company Number: GB-CELGENEUS-167-21880-12032073

PATIENT
  Age: 70 Year
  Sex: Male

DRUGS (19)
  1. NITROGLYCERIN [Concomitant]
     Route: 060
  2. REVLIMID [Suspect]
     Dosage: 5 MILLIGRAM
     Route: 048
     Dates: start: 20120223, end: 20120306
  3. ATORVASTATIN [Concomitant]
     Route: 065
  4. FINASTERIDE [Concomitant]
     Route: 065
  5. SODIUM BICARBONATE [Concomitant]
     Route: 065
  6. ALLOPURINOL [Concomitant]
     Route: 065
     Dates: start: 20120223
  7. OMEPRAZOLE [Concomitant]
     Route: 065
  8. ACYCLOVIR [Concomitant]
     Indication: CHEMOTHERAPY
     Route: 065
     Dates: start: 20120223
  9. BISOPROLOL FUMARATE [Concomitant]
     Route: 065
  10. DEXAMETHASONE [Concomitant]
     Indication: CHEMOTHERAPY
     Route: 065
     Dates: start: 20120223
  11. FOLIC ACID [Concomitant]
     Route: 065
  12. ALBUTEROL [Concomitant]
     Route: 055
  13. COTRIM [Concomitant]
     Route: 065
  14. SERETID [Concomitant]
     Route: 055
  15. CALCIUM CARBONATE [Concomitant]
     Route: 065
  16. ISOSORBIDE MONONITRATE [Concomitant]
     Route: 065
  17. ACETAMINOPHEN [Concomitant]
     Route: 065
  18. TAMSULOSIN HCL [Concomitant]
     Route: 065
  19. FRUSEMIDE [Concomitant]
     Route: 065

REACTIONS (3)
  - SPUTUM INCREASED [None]
  - PANCYTOPENIA [None]
  - DYSPNOEA [None]
